FAERS Safety Report 19521254 (Version 1)
Quarter: 2021Q3

REPORT INFORMATION
  Report Type: Spontaneous
  Country: US (occurrence: US)
  Receive Date: 20210712
  Receipt Date: 20210712
  Transmission Date: 20211014
  Serious: Yes (Other)
  Sender: FDA-Public Use
  Company Number: US-ASTRAZENECA-2021A604290

PATIENT
  Age: 22971 Day
  Sex: Female

DRUGS (4)
  1. LETROZOLE. [Suspect]
     Active Substance: LETROZOLE
     Route: 065
     Dates: start: 20171001
  2. IBRANCE [Suspect]
     Active Substance: PALBOCICLIB
     Route: 048
     Dates: start: 20171001
  3. MBC [UNSPECIFIED INGREDIENT] [Suspect]
     Active Substance: UNSPECIFIED INGREDIENT
     Route: 065
     Dates: start: 20171001
  4. FASLODEX [Suspect]
     Active Substance: FULVESTRANT
     Route: 030
     Dates: start: 20171001

REACTIONS (2)
  - Implant site extravasation [Unknown]
  - Inability to afford medication [Unknown]

NARRATIVE: CASE EVENT DATE: 20210629
